FAERS Safety Report 4283656-6 (Version None)
Quarter: 2004Q1

REPORT INFORMATION
  Report Type: 
  Country: None (occurrence: None)
  Receive Date: 20040129
  Receipt Date: 20040129
  Transmission Date: 20041129
  Serious: Yes (Hospitalization)
  Sender: FDA-Public Use
  Company Number: None

PATIENT
  Age: 77 Year
  Sex: Male
  Weight: 77.6 kg

DRUGS (9)
  1. BACTRIM [Suspect]
     Indication: URINARY TRACT INFECTION
  2. WARFARIN SODIUM [Suspect]
     Indication: DEEP VEIN THROMBOSIS
     Dosage: 10 MG PO QD
     Route: 048
     Dates: start: 20030301
  3. WARFARIN SODIUM [Suspect]
     Indication: PULMONARY EMBOLISM
     Dosage: 10 MG PO QD
     Route: 048
     Dates: start: 20030301
  4. GLUCOTROL XL [Concomitant]
  5. COSOPT [Concomitant]
  6. SPIRONOLACTONE [Concomitant]
  7. LASIX [Concomitant]
  8. NORVASC [Concomitant]
  9. ACCUPRIL [Concomitant]

REACTIONS (3)
  - HAEMOPTYSIS [None]
  - INTERNATIONAL NORMALISED RATIO INCREASED [None]
  - PRODUCTIVE COUGH [None]
